FAERS Safety Report 19714092 (Version 2)
Quarter: 2025Q2

REPORT INFORMATION
  Report Type: Spontaneous
  Country: IT (occurrence: IT)
  Receive Date: 20210818
  Receipt Date: 20250622
  Transmission Date: 20250717
  Serious: Yes (Life-Threatening)
  Sender: AUROBINDO
  Company Number: IT-ORPHANEU-2021002830

PATIENT
  Sex: Female
  Weight: 3.2 kg

DRUGS (2)
  1. IBUPROFEN [Suspect]
     Active Substance: IBUPROFEN
     Indication: Patent ductus arteriosus
     Route: 065
  2. ALPROSTADIL [Concomitant]
     Active Substance: ALPROSTADIL
     Indication: Patent ductus arteriosus
     Route: 042

REACTIONS (2)
  - Drug ineffective [Recovered/Resolved]
  - Off label use [Recovered/Resolved]
